FAERS Safety Report 11214813 (Version 2)
Quarter: 2015Q3

REPORT INFORMATION
  Report Type: Report from Study
  Country: US (occurrence: US)
  Receive Date: 20150624
  Receipt Date: 20150731
  Transmission Date: 20151125
  Serious: Yes (Other)
  Sender: FDA-Public Use
  Company Number: US-BIOGENIDEC-2015BI086391

PATIENT
  Age: 51 Year
  Sex: Female

DRUGS (1)
  1. TECFIDERA [Suspect]
     Active Substance: DIMETHYL FUMARATE
     Indication: MULTIPLE SCLEROSIS
     Route: 048
     Dates: start: 20150312

REACTIONS (3)
  - Generalised tonic-clonic seizure [Recovered/Resolved]
  - Change in seizure presentation [Recovered/Resolved]
  - Hypersomnia [Unknown]

NARRATIVE: CASE EVENT DATE: 201506
